FAERS Safety Report 18609537 (Version 3)
Quarter: 2020Q4

REPORT INFORMATION
  Report Type: Report from Study
  Country: RU (occurrence: RU)
  Receive Date: 20201214
  Receipt Date: 20201221
  Transmission Date: 20210114
  Serious: Yes (Death)
  Sender: FDA-Public Use
  Company Number: RU-JNJFOC-20201215996

PATIENT
  Sex: Male

DRUGS (2)
  1. ETOPOSIDE. [Suspect]
     Active Substance: ETOPOSIDE
     Indication: SYSTEMIC INFLAMMATORY RESPONSE SYNDROME
     Route: 065
  2. REMICADE [Suspect]
     Active Substance: INFLIXIMAB
     Indication: SYSTEMIC INFLAMMATORY RESPONSE SYNDROME
     Route: 042

REACTIONS (3)
  - Off label use [Unknown]
  - Haemophagocytic lymphohistiocytosis [Fatal]
  - Product use in unapproved indication [Unknown]
